FAERS Safety Report 6088662-7 (Version None)
Quarter: 2009Q1

REPORT INFORMATION
  Report Type: 
  Country: None (occurrence: None)
  Receive Date: 20090224
  Receipt Date: 20090219
  Transmission Date: 20090719
  Serious: Yes (Hospitalization)
  Sender: FDA-Public Use
  Company Number: CH-BRISTOL-MYERS SQUIBB COMPANY-14514913

PATIENT
  Age: 63 Year
  Sex: Female

DRUGS (8)
  1. LITALIR CAPS 500 MG [Suspect]
     Indication: MYELOPROLIFERATIVE DISORDER
     Route: 048
     Dates: start: 19980101, end: 20081203
  2. CORDARONE [Interacting]
     Route: 048
     Dates: start: 20080601, end: 20081206
  3. CARVEDILOL [Interacting]
     Route: 048
     Dates: start: 20080601, end: 20081203
  4. RASILEZ [Suspect]
     Dosage: COATED TABS FILM
     Route: 048
     Dates: start: 20080601, end: 20081203
  5. ALDOZONE [Suspect]
     Indication: CARDIAC FAILURE CONGESTIVE
     Route: 048
     Dates: start: 20050101, end: 20081203
  6. ARIMIDEX [Suspect]
     Indication: BREAST CANCER
     Dosage: COATED TABS FILM
     Route: 048
     Dates: start: 20030101, end: 20081203
  7. SINTROM [Concomitant]
     Indication: MYELOPROLIFERATIVE DISORDER
     Dosage: LONG TERM USE
     Route: 048
     Dates: start: 19980101
  8. OMEPRAZOLE [Concomitant]
     Dosage: DURATION= LONG TERM USE
     Route: 048
     Dates: start: 19980101

REACTIONS (5)
  - ATRIOVENTRICULAR BLOCK [None]
  - CHOLESTASIS [None]
  - HEPATITIS CHOLESTATIC [None]
  - INFLUENZA [None]
  - RESPIRATORY FAILURE [None]
